FAERS Safety Report 6231812-X (Version None)
Quarter: 2009Q2

REPORT INFORMATION
  Report Type: 
  Country: None (occurrence: None)
  Receive Date: 20090611
  Receipt Date: 20090611
  Transmission Date: 20091009
  Serious: No
  Sender: FDA-Public Use
  Company Number: None

PATIENT

DRUGS (1)
  1. FLUTICASONE PROPIONATE 110 MCG GLAXOSMITHKLINE [Suspect]
     Indication: ASTHMA
     Dosage: 1 PUFF TWICE DAILY PO SINCE PRODUCT INCEPTION
     Route: 048

REACTIONS (1)
  - DRUG DELIVERY SYSTEM MALFUNCTION [None]
